FAERS Safety Report 13741485 (Version 1)
Quarter: 2017Q3

REPORT INFORMATION
  Report Type: Spontaneous
  Country: US (occurrence: US)
  Receive Date: 20170711
  Receipt Date: 20170711
  Transmission Date: 20171127
  Serious: Yes (Other)
  Sender: FDA-Public Use
  Company Number: None

PATIENT
  Age: 70 Year
  Sex: Male
  Weight: 87 kg

DRUGS (1)
  1. CAPECITABINE. [Suspect]
     Active Substance: CAPECITABINE
     Indication: COLON CANCER
     Dosage: OTHER DOSE:MG;OTHER FREQUENCY:1.5G QAM 1G QPM;?
     Route: 048
     Dates: start: 20170510, end: 20170711

REACTIONS (2)
  - Neuropathy peripheral [None]
  - Diarrhoea [None]
